FAERS Safety Report 14636630 (Version 2)
Quarter: 2018Q4

REPORT INFORMATION
  Report Type: Spontaneous
  Country: US (occurrence: US)
  Receive Date: 20180314
  Receipt Date: 20181106
  Transmission Date: 20190204
  Serious: Yes (Other)
  Sender: FDA-Public Use
  Company Number: US-ASTRAZENECA-2018SE29118

PATIENT
  Age: 68 Year
  Sex: Female
  Weight: 60.8 kg

DRUGS (45)
  1. PREVACID [Suspect]
     Active Substance: LANSOPRAZOLE
     Indication: PEPTIC ULCER
     Route: 065
     Dates: start: 2010
  2. CALCIUM CITRATE [Concomitant]
     Active Substance: CALCIUM CITRATE
     Dates: start: 2018
  3. FOLIC ACID. [Concomitant]
     Active Substance: FOLIC ACID
     Indication: DEFICIENCY ANAEMIA
     Dates: start: 2005, end: 2009
  4. GABAPENTIN. [Concomitant]
     Active Substance: GABAPENTIN
     Dosage: 400 MG
     Route: 065
     Dates: start: 20080903
  5. AMLODIPINE BESYLATE. [Concomitant]
     Active Substance: AMLODIPINE BESYLATE
     Dosage: 5 MG
     Route: 065
     Dates: start: 20101111
  6. SULFAMETHOXAZOLE [Concomitant]
     Active Substance: SULFAMETHOXAZOLE
     Route: 065
     Dates: start: 20111215
  7. FLUOCINOLONE ACETONIDE. [Concomitant]
     Active Substance: FLUOCINOLONE ACETONIDE
     Route: 065
     Dates: start: 20140807
  8. HYDROCODONE-APAP [Concomitant]
     Active Substance: ACETAMINOPHEN\HYDROCODONE
     Dosage: 5-500
     Route: 065
     Dates: start: 20070720
  9. PIOGLITAZONE. [Concomitant]
     Active Substance: PIOGLITAZONE
     Dosage: 30 MG
     Route: 065
     Dates: start: 20130401
  10. NEXIUM [Suspect]
     Active Substance: ESOMEPRAZOLE MAGNESIUM
     Indication: PEPTIC ULCER
     Route: 048
     Dates: start: 2006, end: 2015
  11. MELOXICAM. [Concomitant]
     Active Substance: MELOXICAM
     Indication: ANTIINFLAMMATORY THERAPY
     Dates: start: 2015
  12. OYSTER SHELL CALCIUM [Concomitant]
     Active Substance: CALCIUM
     Indication: OSTEOPOROSIS
     Dates: start: 2004, end: 2009
  13. AMMONIUM LACTATE. [Concomitant]
     Active Substance: AMMONIUM LACTATE
     Route: 065
     Dates: start: 20090309
  14. OMEPRAZOLE. [Suspect]
     Active Substance: OMEPRAZOLE
     Indication: PEPTIC ULCER
     Route: 065
     Dates: start: 2007
  15. LORATADINE. [Concomitant]
     Active Substance: LORATADINE
     Indication: ANTIALLERGIC THERAPY
     Dates: start: 2007, end: 2009
  16. AMLODIPINE [Concomitant]
     Active Substance: AMLODIPINE BESYLATE
     Indication: BLOOD PRESSURE ABNORMAL
     Dates: start: 2010, end: 2016
  17. METOCLOPRAMIDE. [Concomitant]
     Active Substance: METOCLOPRAMIDE
     Dosage: 10 MG
     Route: 065
     Dates: start: 20070416
  18. DIAZEPAM. [Concomitant]
     Active Substance: DIAZEPAM
     Dosage: 5 MG
     Route: 065
     Dates: start: 20070717
  19. CEPHALEXIN. [Concomitant]
     Active Substance: CEPHALEXIN
     Dosage: 500 MG
     Route: 065
     Dates: start: 20100723
  20. PREVACID [Suspect]
     Active Substance: LANSOPRAZOLE
     Indication: PEPTIC ULCER
     Dosage: GENERIC
     Route: 065
     Dates: start: 20100128
  21. VITAMIN D [Concomitant]
     Active Substance: CHOLECALCIFEROL
     Indication: HYPOVITAMINOSIS
     Dates: start: 2013
  22. HYDROCHLOROTHIAZIDE. [Concomitant]
     Active Substance: HYDROCHLOROTHIAZIDE
     Indication: BLOOD PRESSURE ABNORMAL
     Dates: start: 2007, end: 2015
  23. SIMVASTATIN. [Concomitant]
     Active Substance: SIMVASTATIN
     Indication: BLOOD CHOLESTEROL ABNORMAL
     Dates: start: 2008, end: 2009
  24. ATENOLOL. [Concomitant]
     Active Substance: ATENOLOL
     Indication: BLOOD PRESSURE ABNORMAL
     Dates: start: 2008, end: 2015
  25. CETIRIZINE HYDROCHLORIDE. [Concomitant]
     Active Substance: CETIRIZINE HYDROCHLORIDE
     Dosage: 10 MG
     Route: 065
     Dates: start: 20150709
  26. PREVACID [Suspect]
     Active Substance: LANSOPRAZOLE
     Indication: PEPTIC ULCER
     Dosage: GENERIC
     Route: 065
     Dates: start: 2010
  27. RANITIDINE. [Concomitant]
     Active Substance: RANITIDINE
     Indication: PEPTIC ULCER
     Dates: start: 2007
  28. GLIPIZIDE. [Concomitant]
     Active Substance: GLIPIZIDE
     Indication: DIABETES MELLITUS
     Dates: start: 2005, end: 2012
  29. NORTRIPTYLINE [Concomitant]
     Active Substance: NORTRIPTYLINE
     Indication: DEPRESSION
     Dates: start: 2007, end: 2012
  30. LISINOPRIL. [Concomitant]
     Active Substance: LISINOPRIL
     Indication: BLOOD PRESSURE ABNORMAL
     Dates: start: 2005, end: 2015
  31. NITROGLYCERINE [Concomitant]
     Active Substance: NITROGLYCERIN
     Indication: ANGINA PECTORIS
     Dates: start: 2008, end: 2009
  32. ALENDRONATE [Concomitant]
     Active Substance: ALENDRONATE SODIUM
     Indication: OSTEOPOROSIS
     Dates: start: 2008, end: 2009
  33. CALCIUM [Concomitant]
     Active Substance: CALCIUM
     Indication: OSTEOPOROSIS
     Dates: start: 2013, end: 2016
  34. TAGAMET [Concomitant]
     Active Substance: CIMETIDINE
  35. NITROSTAT [Concomitant]
     Active Substance: NITROGLYCERIN
     Dosage: 0.4 MG
     Route: 065
     Dates: start: 20140615
  36. SERTRALINE [Concomitant]
     Active Substance: SERTRALINE HYDROCHLORIDE
     Dates: start: 2008, end: 2015
  37. CLINDAMYCIN. [Concomitant]
     Active Substance: CLINDAMYCIN
     Route: 065
     Dates: start: 20090305
  38. FLUZONE [Concomitant]
     Active Substance: INFLUENZA A VIRUS A/CALIFORNIA/7/2009 X-179A (H1N1) ANTIGEN (FORMALDEHYDE INACTIVATED)\INFLUENZA A VIRUS A/VICTORIA/210/2009 X-187 (H3N2) ANTIGEN (FORMALDEHYDE INACTIVATED)\INFLUENZA B VIRUS B/BRISBANE/60/2008 ANTIGEN (FORMALDEHYDE INACTIVATED)
     Route: 065
     Dates: start: 20140807
  39. NEXIUM [Suspect]
     Active Substance: ESOMEPRAZOLE MAGNESIUM
     Indication: PEPTIC ULCER
     Route: 048
     Dates: start: 20060307
  40. NEXIUM 24HR [Suspect]
     Active Substance: ESOMEPRAZOLE MAGNESIUM
     Indication: PEPTIC ULCER
     Dosage: 22.3 MG
     Route: 048
     Dates: start: 2016
  41. ASPIRIN. [Concomitant]
     Active Substance: ASPIRIN
     Dosage: 81 MG
     Dates: start: 1997
  42. ACTOS [Concomitant]
     Active Substance: PIOGLITAZONE HYDROCHLORIDE
     Indication: DIABETES MELLITUS
     Dates: start: 2007, end: 2012
  43. CILOSTAZOL. [Concomitant]
     Active Substance: CILOSTAZOL
     Dosage: 50 MG
     Route: 048
     Dates: start: 20091201
  44. LIPITOR [Concomitant]
     Active Substance: ATORVASTATIN CALCIUM
     Dosage: 80 MG
     Route: 065
     Dates: start: 20070416
  45. BENZOYL PEROXIDE. [Concomitant]
     Active Substance: BENZOYL PEROXIDE
     Route: 065
     Dates: start: 20070419

REACTIONS (5)
  - Acute kidney injury [Not Recovered/Not Resolved]
  - Chronic kidney disease [Not Recovered/Not Resolved]
  - Hyperparathyroidism secondary [Unknown]
  - Nephrogenic anaemia [Unknown]
  - Renal failure [Unknown]

NARRATIVE: CASE EVENT DATE: 2011
